FAERS Safety Report 5030102-0 (Version None)
Quarter: 2006Q2

REPORT INFORMATION
  Report Type: 
  Country: None (occurrence: None)
  Receive Date: 20060614
  Receipt Date: 20060602
  Transmission Date: 20061013
  Serious: Yes (Other)
  Sender: FDA-Public Use
  Company Number: 2006-01365

PATIENT
  Age: 70 Year
  Sex: Female
  Weight: 59 kg

DRUGS (10)
  1. VELCADE [Suspect]
     Indication: MULTIPLE MYELOMA
     Dosage: 2.10 MG, INTRAVENOUS
     Route: 015
     Dates: start: 20051122, end: 20060227
  2. CORDARONE [Concomitant]
  3. FLECAINIDE ACETATE [Concomitant]
  4. BACTRIM [Concomitant]
  5. ZOCOR [Concomitant]
  6. IDEOS (COLECALCIFEROL, CALCIUM CARBONATE) [Concomitant]
  7. POTASSIUM CHLORIDE [Concomitant]
  8. CORTANCYL [Concomitant]
  9. FLUINDIONE (FLUINDIONE) [Concomitant]
  10. GUTRON (MIDODRINE HYDROCHLORIDE) [Concomitant]

REACTIONS (1)
  - RENAL FAILURE [None]
